FAERS Safety Report 20607674 (Version 2)
Quarter: 2022Q4

REPORT INFORMATION
  Report Type: Spontaneous
  Country: US (occurrence: US)
  Receive Date: 20220317
  Receipt Date: 20221216
  Transmission Date: 20230113
  Serious: No
  Sender: FDA-Public Use
  Company Number: US-ENDO PHARMACEUTICALS INC-2021-010442

PATIENT
  Age: 52 Year
  Sex: Male
  Weight: 88.435 kg

DRUGS (2)
  1. XIAFLEX [Suspect]
     Active Substance: COLLAGENASE CLOSTRIDIUM HISTOLYTICUM
     Indication: Peyronie^s disease
     Dosage: UNK UNKNOWN, UNKNOWN, FIRST INJECTION
     Route: 065
     Dates: start: 202106
  2. XIAFLEX [Suspect]
     Active Substance: COLLAGENASE CLOSTRIDIUM HISTOLYTICUM
     Dosage: UNK UNKNOWN, UNKNOWN, SECOND INJECTION
     Route: 065
     Dates: start: 202106

REACTIONS (11)
  - Peyronie^s disease [Unknown]
  - Condition aggravated [Unknown]
  - Discomfort [Unknown]
  - Arthralgia [Recovered/Resolved]
  - Pain [Unknown]
  - Scrotal pain [Recovered/Resolved]
  - Groin pain [Recovered/Resolved]
  - Skin discolouration [Recovered/Resolved]
  - Penile pain [Recovered/Resolved]
  - Inappropriate schedule of product administration [Unknown]
  - Wrong technique in product usage process [Unknown]

NARRATIVE: CASE EVENT DATE: 20210601
